FAERS Safety Report 6935158-3 (Version None)
Quarter: 2010Q3

REPORT INFORMATION
  Report Type: 
  Country: None (occurrence: None)
  Receive Date: 20100822
  Receipt Date: 20100816
  Transmission Date: 20110219
  Serious: Yes (Death, Hospitalization, Other)
  Sender: FDA-Public Use
  Company Number: PHEH2009US16200

PATIENT
  Sex: Male

DRUGS (3)
  1. EXJADE [Suspect]
     Indication: IRON METABOLISM DISORDER
     Dosage: 500 MG, BID
     Route: 048
  2. EXJADE [Suspect]
     Indication: HAEMOCHROMATOSIS
  3. EXJADE [Suspect]
     Indication: ANAEMIA

REACTIONS (6)
  - ASTHENIA [None]
  - BRAIN INJURY [None]
  - DISEASE PROGRESSION [None]
  - FALL [None]
  - HYPOTENSION [None]
  - RENAL DISORDER [None]
